FAERS Safety Report 8205776-3 (Version None)
Quarter: 2012Q1

REPORT INFORMATION
  Report Type: 
  Country: None (occurrence: None)
  Receive Date: 20120313
  Receipt Date: 20120306
  Transmission Date: 20120608
  Serious: Yes (Hospitalization, Other)
  Sender: FDA-Public Use
  Company Number: US-PFIZER INC-2012038889

PATIENT
  Sex: Female
  Weight: 76.644 kg

DRUGS (3)
  1. ZYVOX [Suspect]
     Indication: INFECTION
     Dosage: 600 MG, 2X/DAY
     Route: 048
     Dates: start: 20040101, end: 20120101
  2. ZYVOX [Suspect]
     Indication: PSORIASIS
  3. MORPHINE [Concomitant]
     Indication: PAIN
     Dosage: UNK

REACTIONS (3)
  - LEG AMPUTATION [None]
  - MALAISE [None]
  - PSORIASIS [None]
